FAERS Safety Report 22333370 (Version 1)
Quarter: 2023Q2

REPORT INFORMATION
  Report Type: Spontaneous
  Country: US (occurrence: None)
  Receive Date: 20230516
  Receipt Date: 20230516
  Transmission Date: 20230722
  Serious: Yes (Life-Threatening, Hospitalization)
  Sender: FDA-Public Use
  Company Number: None

PATIENT
  Age: 61 Year
  Sex: Female

DRUGS (2)
  1. FLUTICASONE PROPIONATE NASAL [Suspect]
     Active Substance: FLUTICASONE PROPIONATE
     Dates: start: 20230428, end: 20230504
  2. CETIRIZINE [Suspect]
     Active Substance: CETIRIZINE HYDROCHLORIDE
     Indication: Respiratory tract congestion
     Dosage: OTHER ROUTE : AS DIRECTED ;?
     Route: 050
     Dates: start: 20230423, end: 20230504

REACTIONS (4)
  - Seizure [None]
  - Tinnitus [None]
  - Pain in extremity [None]
  - Therapy cessation [None]

NARRATIVE: CASE EVENT DATE: 20230429
